FAERS Safety Report 8495402-0 (Version None)
Quarter: 2012Q3

REPORT INFORMATION
  Report Type: 
  Country: None (occurrence: None)
  Receive Date: 20120709
  Receipt Date: 20120704
  Transmission Date: 20120928
  Serious: Yes (Life-Threatening)
  Sender: FDA-Public Use
  Company Number: FR-ASTRAZENECA-2012SE45590

PATIENT
  Age: 53 Year
  Sex: Male

DRUGS (5)
  1. DIPRIVAN [Suspect]
     Route: 042
     Dates: start: 20120220, end: 20120220
  2. SUFENTANIL CITRATE [Suspect]
     Dates: start: 20120220, end: 20120220
  3. DIPRIVAN [Suspect]
     Route: 042
     Dates: start: 20120220, end: 20120220
  4. CELOCURINE [Suspect]
     Route: 042
     Dates: start: 20120220, end: 20120220
  5. ROCURONIUM BROMIDE [Suspect]
     Route: 042
     Dates: start: 20120220, end: 20120220

REACTIONS (1)
  - ANAPHYLACTIC SHOCK [None]
